FAERS Safety Report 18321873 (Version 1)
Quarter: 2020Q3

REPORT INFORMATION
  Report Type: Spontaneous
  Country: US (occurrence: US)
  Receive Date: 20200928
  Receipt Date: 20200928
  Transmission Date: 20201103
  Serious: No
  Sender: FDA-Public Use
  Company Number: US-PFIZER INC-2017281709

PATIENT
  Age: 48 Year
  Sex: Male

DRUGS (2)
  1. SOMAVERT [Suspect]
     Active Substance: PEGVISOMANT
     Dosage: 25 MG, DAILY (7 DAYS/WEEK)
     Dates: start: 201108
  2. SOMAVERT [Suspect]
     Active Substance: PEGVISOMANT
     Dosage: 200 MG, DAILY

REACTIONS (1)
  - Insulin-like growth factor increased [Unknown]
